FAERS Safety Report 5198716-5 (Version None)
Quarter: 2007Q1

REPORT INFORMATION
  Report Type: 
  Country: None (occurrence: None)
  Receive Date: 20070104
  Receipt Date: 20070102
  Transmission Date: 20070707
  Serious: Yes (Death, Life-Threatening, Hospitalization, Disabling, Other)
  Sender: FDA-Public Use
  Company Number: US-GLAXOSMITHKLINE-A0626041A

PATIENT
  Age: 84 Year
  Sex: Female

DRUGS (4)
  1. LAMICTAL [Suspect]
     Dosage: 25MG PER DAY
     Route: 048
     Dates: start: 20060830, end: 20060901
  2. LIPITOR [Concomitant]
  3. ULTRAM [Concomitant]
  4. EPIDURAL [Concomitant]
     Indication: DRUG USE FOR UNKNOWN INDICATION
     Dates: start: 20060831, end: 20060831

REACTIONS (9)
  - HERPES ZOSTER [None]
  - HYPERSENSITIVITY [None]
  - LIVER FUNCTION TEST ABNORMAL [None]
  - MALAISE [None]
  - PURPURA [None]
  - PYREXIA [None]
  - RASH [None]
  - TOXIC EPIDERMAL NECROLYSIS [None]
  - URINARY TRACT INFECTION [None]
